FAERS Safety Report 14432428 (Version 1)
Quarter: 2018Q1

REPORT INFORMATION
  Report Type: Spontaneous
  Country: US (occurrence: US)
  Receive Date: 20180124
  Receipt Date: 20180124
  Transmission Date: 20180509
  Serious: Yes (Other)
  Sender: FDA-Public Use
  Company Number: US-PFIZER INC-2018030648

PATIENT
  Age: 57 Year
  Sex: Female
  Weight: 68.4 kg

DRUGS (1)
  1. DOXEPIN HCL [Suspect]
     Active Substance: DOXEPIN HYDROCHLORIDE
     Indication: DEPRESSION
     Dosage: 250 MG, DAILY (5 TABLETS THAT MAKES IT 250 MG AT BEDTIME)
     Route: 048

REACTIONS (9)
  - Drug hypersensitivity [Unknown]
  - Pharyngeal oedema [Unknown]
  - Throat tightness [Unknown]
  - Swelling face [Unknown]
  - Eye swelling [Unknown]
  - Paraesthesia mucosal [Unknown]
  - Swelling [Unknown]
  - Peripheral swelling [Unknown]
  - Dyspnoea [Unknown]
